FAERS Safety Report 6695179-5 (Version None)
Quarter: 2010Q2

REPORT INFORMATION
  Report Type: 
  Country: None (occurrence: None)
  Receive Date: 20100423
  Receipt Date: 20100413
  Transmission Date: 20101027
  Serious: Yes (Other)
  Sender: FDA-Public Use
  Company Number: IT-WATSON-2010-05025

PATIENT
  Age: 23 Year
  Sex: Male

DRUGS (6)
  1. HYDROXYZINE HCL [Suspect]
     Indication: URTICARIA
     Dosage: UNK
  2. CETIRIZINE HCL [Suspect]
     Indication: URTICARIA
  3. DESLORATADINE [Suspect]
     Indication: URTICARIA
  4. FEXOFENADINE [Suspect]
     Indication: URTICARIA
  5. EBASTINE [Suspect]
     Indication: URTICARIA
  6. RUPATADINE [Suspect]
     Indication: URTICARIA
     Dosage: UNK

REACTIONS (2)
  - PARADOXICAL DRUG REACTION [None]
  - URTICARIA [None]
